FAERS Safety Report 10890304 (Version 2)
Quarter: 2015Q3

REPORT INFORMATION
  Report Type: Report from Study
  Country: JP (occurrence: JP)
  Receive Date: 20150305
  Receipt Date: 20150817
  Transmission Date: 20151125
  Serious: Yes (Hospitalization, Other)
  Sender: FDA-Public Use
  Company Number: JP-SHIRE-JP201501780

PATIENT
  Age: 76 Year
  Sex: Female

DRUGS (3)
  1. 422 (ANAGRELIDE) [Suspect]
     Active Substance: ANAGRELIDE
     Dosage: 1 MG/DAY, UNKNOWN
     Route: 048
     Dates: start: 20150115, end: 20150128
  2. 422 (ANAGRELIDE) [Suspect]
     Active Substance: ANAGRELIDE
     Indication: ESSENTIAL THROMBOCYTHAEMIA
     Dosage: 2 MG/DAY, UNKNOWN
     Route: 048
     Dates: start: 20150212, end: 20150213
  3. 422 (ANAGRELIDE) [Suspect]
     Active Substance: ANAGRELIDE
     Dosage: 1.5 MG/DAY, UNKNOWN
     Route: 048
     Dates: start: 20150129, end: 20150211

REACTIONS (1)
  - Acute myeloid leukaemia [Not Recovered/Not Resolved]

NARRATIVE: CASE EVENT DATE: 20150213
